FAERS Safety Report 6893081-7 (Version None)
Quarter: 2010Q3

REPORT INFORMATION
  Report Type: 
  Country: None (occurrence: None)
  Receive Date: 20100731
  Receipt Date: 20090403
  Transmission Date: 20110219
  Serious: No
  Sender: FDA-Public Use
  Company Number: US-PFIZER INC-2009195125

PATIENT
  Sex: Female
  Weight: 113.38 kg

DRUGS (3)
  1. NEURONTIN [Suspect]
     Indication: NEURALGIA
     Dosage: UNK
     Dates: start: 20070101
  2. ZOLOFT [Concomitant]
  3. NEXIUM [Concomitant]

REACTIONS (2)
  - MALAISE [None]
  - NERVOUSNESS [None]
